FAERS Safety Report 6710287-8 (Version None)
Quarter: 2010Q2

REPORT INFORMATION
  Report Type: 
  Country: None (occurrence: None)
  Receive Date: 20100430
  Receipt Date: 20100416
  Transmission Date: 20101027
  Serious: Yes (Other)
  Sender: FDA-Public Use
  Company Number: 010687

PATIENT
  Age: 33 Year
  Sex: Female

DRUGS (3)
  1. VIMPAT [Suspect]
     Indication: PARTIAL SEIZURES
     Dosage: (DOSE INCREASED BY 50 MG/WEEK. MAXIMUM DOSE: 200 MG.)
     Dates: start: 20090127, end: 20090815
  2. LEVETIRACETAM [Concomitant]
  3. CARBAMAZEPINE [Concomitant]

REACTIONS (3)
  - CONVULSION [None]
  - PERIPHERAL COLDNESS [None]
  - VISION BLURRED [None]
